FAERS Safety Report 8426090-7 (Version None)
Quarter: 2012Q2

REPORT INFORMATION
  Report Type: 
  Country: None (occurrence: None)
  Receive Date: 20120323
  Receipt Date: 20110321
  Transmission Date: 20120825
  Serious: Yes (Hospitalization)
  Sender: FDA-Public Use
  Company Number: 163-21880-11021551

PATIENT
  Age: 85 Year
  Sex: Male

DRUGS (9)
  1. REVLIMID [Suspect]
     Indication: MULTIPLE MYELOMA
     Dosage: 5 MG, DAILY FOR 28 DAYS, PO
     Route: 048
     Dates: start: 20101129, end: 20110204
  2. LISINOPRIL [Concomitant]
  3. AMLODIPINE BESYLATE [Concomitant]
  4. ASPIRIN [Concomitant]
  5. REVLIMID [Suspect]
     Dosage: 10 MG, DAILY FOR 21 DAYS, PO
     Route: 048
     Dates: start: 20110204, end: 20110303
  6. HUMULIN (NOVOLIN 20/80) [Concomitant]
  7. PRAZOSIN HCL (PRAZOSIN HYDROCHLORIDE) [Concomitant]
  8. PREDNISONE [Concomitant]
  9. INDOMETHACIN [Concomitant]

REACTIONS (3)
  - HAEMOGLOBIN DECREASED [None]
  - FALL [None]
  - DRUG INEFFECTIVE [None]
